FAERS Safety Report 6125341-1 (Version None)
Quarter: 2009Q1

REPORT INFORMATION
  Report Type: 
  Country: None (occurrence: None)
  Receive Date: 20090317
  Receipt Date: 20090303
  Transmission Date: 20090719
  Serious: Yes (Other)
  Sender: FDA-Public Use
  Company Number: 1000005113

PATIENT
  Age: 61 Year
  Sex: Male

DRUGS (2)
  1. ESCITALOPRAM [Suspect]
  2. NEXEN [Suspect]

REACTIONS (2)
  - OEDEMA [None]
  - RESPIRATORY DISTRESS [None]
